FAERS Safety Report 4706350-3 (Version None)
Quarter: 2005Q2

REPORT INFORMATION
  Report Type: 
  Country: None (occurrence: None)
  Receive Date: 20050629
  Receipt Date: 20050616
  Transmission Date: 20051028
  Serious: Yes (Hospitalization)
  Sender: FDA-Public Use
  Company Number: 2005-BP-10161RO

PATIENT
  Age: 77 Year
  Sex: Female
  Weight: 46.7 kg

DRUGS (1)
  1. LIDOCAINE VISCOUS [Suspect]
     Indication: ANAESTHESIA
     Dosage: SWISH/SWALLOW X 1 (SEE TEXT, ONCE) PO
     Route: 048
     Dates: start: 20050602, end: 20050602

REACTIONS (3)
  - APHASIA [None]
  - MUSCULOSKELETAL STIFFNESS [None]
  - TINNITUS [None]
